FAERS Safety Report 9719127 (Version 2)
Quarter: 2013Q4

REPORT INFORMATION
  Report Type: Spontaneous
  Country: US (occurrence: US)
  Receive Date: 20131127
  Receipt Date: 20131211
  Transmission Date: 20140711
  Serious: Yes (Hospitalization)
  Sender: FDA-Public Use
  Company Number: GXBR2013US002040

PATIENT
  Age: 64 Year
  Sex: Female
  Weight: 66.3 kg

DRUGS (6)
  1. FLUOROURACIL [Suspect]
     Indication: TONSIL CANCER
     Dosage: 600 MG/M2, UNK
     Route: 042
     Dates: start: 20131027, end: 20131101
  2. FLUOROURACIL [Suspect]
     Dosage: 600 MG/M2, UNK
     Route: 042
     Dates: start: 20131110, end: 20131115
  3. PACLITAXEL [Suspect]
     Indication: TONSIL CANCER
     Dosage: 100 MG/M2, UNK
     Route: 042
     Dates: start: 20131027, end: 20131101
  4. PACLITAXEL [Suspect]
     Dosage: 100 MG/M2, UNK
     Route: 042
     Dates: start: 20131110, end: 20131115
  5. HYDROXYUREA [Suspect]
     Indication: TONSIL CANCER
     Dosage: 500 MG, BID
     Route: 048
     Dates: start: 20131027, end: 20131101
  6. HYDROXYUREA [Suspect]
     Dosage: 500 MG, BID
     Route: 048
     Dates: start: 20131110, end: 20131115

REACTIONS (5)
  - Oesophagitis [Recovered/Resolved]
  - Haematemesis [Recovered/Resolved]
  - Nausea [Recovered/Resolved]
  - Vomiting [Recovered/Resolved]
  - White blood cell count decreased [Unknown]
